FAERS Safety Report 4889900-6 (Version None)
Quarter: 2006Q1

REPORT INFORMATION
  Report Type: 
  Country: None (occurrence: None)
  Receive Date: 20060124
  Receipt Date: 20051005
  Transmission Date: 20060701
  Serious: Yes (Hospitalization)
  Sender: FDA-Public Use
  Company Number: US-MERCK-0510USA05595

PATIENT
  Age: 53 Year
  Sex: Female
  Weight: 49 kg

DRUGS (1)
  1. VIOXX [Suspect]
     Indication: INTERVERTEBRAL DISC DEGENERATION
     Route: 048
     Dates: start: 19990101, end: 20041001

REACTIONS (8)
  - ANGIOPATHY [None]
  - BACK PAIN [None]
  - CARDIOVASCULAR DISORDER [None]
  - GASTRIC DISORDER [None]
  - HYPERTENSION [None]
  - MIGRAINE [None]
  - RENAL ARTERY STENOSIS [None]
  - ROTATOR CUFF SYNDROME [None]
